FAERS Safety Report 15705915 (Version 1)
Quarter: 2018Q4

REPORT INFORMATION
  Report Type: Spontaneous
  Country: SK (occurrence: SK)
  Receive Date: 20181210
  Receipt Date: 20181210
  Transmission Date: 20190205
  Serious: Yes (Other)
  Sender: FDA-Public Use
  Company Number: SK-B.I. PHARMACEUTICALS,INC./RIDGEFIELD-2018-BI-058562

PATIENT
  Age: 75 Year
  Sex: Male

DRUGS (2)
  1. GILOTRIF [Suspect]
     Active Substance: AFATINIB
     Indication: ADENOCARCINOMA
     Route: 048
     Dates: start: 20151103
  2. GILOTRIF [Suspect]
     Active Substance: AFATINIB
     Route: 048
     Dates: start: 201603, end: 201704

REACTIONS (5)
  - Malignant neoplasm progression [Unknown]
  - Dyspepsia [Unknown]
  - Ascites [Unknown]
  - Skin toxicity [Recovered/Resolved]
  - Skin toxicity [Unknown]

NARRATIVE: CASE EVENT DATE: 20151113
